FAERS Safety Report 14174013 (Version 5)
Quarter: 2018Q1

REPORT INFORMATION
  Report Type: Report from Study
  Country: CA (occurrence: CA)
  Receive Date: 20171109
  Receipt Date: 20180108
  Transmission Date: 20180508
  Serious: Yes (Hospitalization, Other)
  Sender: FDA-Public Use
  Company Number: CA-GLAXOSMITHKLINE-CA2016GSK113397

PATIENT
  Age: 41 Year
  Sex: Female
  Weight: 76 kg

DRUGS (6)
  1. MEPOLIZUMAB [Suspect]
     Active Substance: MEPOLIZUMAB
     Dosage: 100 MG, Z
     Route: 058
  2. MEPOLIZUMAB [Suspect]
     Active Substance: MEPOLIZUMAB
     Dosage: 100 MG, Z
     Route: 058
  3. MEPOLIZUMAB [Suspect]
     Active Substance: MEPOLIZUMAB
     Indication: ASTHMA
     Dosage: 100 MG, Z
     Route: 058
     Dates: start: 20160511
  4. MEPOLIZUMAB [Suspect]
     Active Substance: MEPOLIZUMAB
     Dosage: 100 MG,Z
     Route: 042
     Dates: start: 20171229
  5. MEPOLIZUMAB [Suspect]
     Active Substance: MEPOLIZUMAB
     Dosage: 100 MG, Z
     Route: 058
     Dates: start: 20161207
  6. MEPOLIZUMAB [Suspect]
     Active Substance: MEPOLIZUMAB
     Dosage: 100 MG, Z
     Route: 042
     Dates: start: 20171204

REACTIONS (11)
  - Hypersensitivity [Recovering/Resolving]
  - Dyspnoea [Recovering/Resolving]
  - Hypertension [Unknown]
  - Viral infection [Unknown]
  - Asthma [Unknown]
  - Pruritus [Unknown]
  - Wheezing [Unknown]
  - Pneumonia [Recovered/Resolved]
  - Eczema [Unknown]
  - Influenza [Unknown]
  - Urticaria [Recovering/Resolving]

NARRATIVE: CASE EVENT DATE: 20171015
